FAERS Safety Report 9547212 (Version 1)
Quarter: 2013Q3

REPORT INFORMATION
  Report Type: Other
  Country: DE (occurrence: DE)
  Receive Date: 20130924
  Receipt Date: 20130924
  Transmission Date: 20140515
  Serious: Yes (Other)
  Sender: FDA-Public Use
  Company Number: DE-LUPIN PHARMACEUTICALS INC.-2013-01644

PATIENT
  Age: 35 Year
  Sex: Female
  Weight: 70 kg

DRUGS (3)
  1. LAMOTRIGIN [Suspect]
     Indication: BIPOLAR DISORDER
     Route: 048
     Dates: start: 20070513
  2. QUETIAPINE [Suspect]
     Indication: BIPOLAR DISORDER
     Route: 048
  3. LITHIUM [Suspect]
     Indication: BIPOLAR DISORDER
     Route: 048
     Dates: start: 20070513

REACTIONS (4)
  - Premature rupture of membranes [Unknown]
  - Gestational diabetes [Unknown]
  - Hypertension [Unknown]
  - Exposure during pregnancy [Unknown]
